FAERS Safety Report 5254306-7 (Version None)
Quarter: 2007Q1

REPORT INFORMATION
  Report Type: 
  Country: None (occurrence: None)
  Receive Date: 20070302
  Receipt Date: 20070227
  Transmission Date: 20070707
  Serious: Yes (Other)
  Sender: FDA-Public Use
  Company Number: 2007UW03740

PATIENT
  Age: 65 Year
  Sex: Female

DRUGS (1)
  1. ARIMIDEX [Suspect]
     Route: 048
     Dates: start: 20060901

REACTIONS (8)
  - ACTIVITIES OF DAILY LIVING IMPAIRED [None]
  - ARTHRALGIA [None]
  - ASTHENIA [None]
  - DIARRHOEA [None]
  - GAIT DISTURBANCE [None]
  - HOT FLUSH [None]
  - INSOMNIA [None]
  - OEDEMA PERIPHERAL [None]
